FAERS Safety Report 6603252-2 (Version None)
Quarter: 2010Q1

REPORT INFORMATION
  Report Type: 
  Country: None (occurrence: None)
  Receive Date: 20100218
  Receipt Date: 20100208
  Transmission Date: 20100710
  Serious: Yes (Other)
  Sender: FDA-Public Use
  Company Number: 230020M10GBR

PATIENT

DRUGS (1)
  1. REBIF [Suspect]
     Dosage: 44

REACTIONS (1)
  - RENAL FAILURE ACUTE [None]
